FAERS Safety Report 22159729 (Version 2)
Quarter: 2025Q4

REPORT INFORMATION
  Report Type: Spontaneous
  Country: US (occurrence: US)
  Receive Date: 20230331
  Receipt Date: 20251223
  Transmission Date: 20260117
  Serious: No
  Sender: PADAGIS
  Company Number: US-PADAGIS-2023PAD00381

PATIENT

DRUGS (2)
  1. IMIQUIMOD [Suspect]
     Active Substance: IMIQUIMOD
     Indication: Malignant melanoma stage 0
     Dosage: UNK, (2.5 MG-3.125 MG, FIVE TIMES WEEKLY FOR 12 WEEKS)
     Route: 061
  2. IMIQUIMOD [Suspect]
     Active Substance: IMIQUIMOD
     Dosage: UNK
     Route: 061

REACTIONS (3)
  - Skin erosion [Unknown]
  - Fatigue [Recovered/Resolved]
  - Product use in unapproved indication [Unknown]
